APPROVED DRUG PRODUCT: RISPERIDONE
Active Ingredient: RISPERIDONE
Strength: 1MG/ML
Dosage Form/Route: SOLUTION;ORAL
Application: A090347 | Product #001
Applicant: SUN PHARMA CANADA INC
Approved: Feb 7, 2011 | RLD: No | RS: No | Type: DISCN